FAERS Safety Report 7369165-6 (Version None)
Quarter: 2011Q1

REPORT INFORMATION
  Report Type: 
  Country: None (occurrence: None)
  Receive Date: 20110323
  Receipt Date: 20110318
  Transmission Date: 20110831
  Serious: Yes (Other)
  Sender: FDA-Public Use
  Company Number: US-PFIZER INC-2011060484

PATIENT
  Sex: Male
  Weight: 109 kg

DRUGS (5)
  1. LEVOTHYROXINE [Concomitant]
     Indication: THYROID DISORDER
     Dosage: 1.75 MG, UNK
  2. ALLEGRA [Concomitant]
     Indication: HYPERSENSITIVITY
     Dosage: 180 MG, UNK
  3. ESOMEPRAZOLE [Concomitant]
     Indication: GASTROOESOPHAGEAL REFLUX DISEASE
     Dosage: UNK
  4. CELEBREX [Concomitant]
     Indication: ARTHRITIS
     Dosage: UNK
  5. LYRICA [Suspect]
     Indication: PERIPHERAL NERVE INJURY
     Dosage: 75 MG, 1X/DAY
     Route: 048
     Dates: start: 20110209, end: 20110223

REACTIONS (13)
  - DYSPNOEA [None]
  - DRY MOUTH [None]
  - HYPOAESTHESIA [None]
  - DIZZINESS [None]
  - WEIGHT INCREASED [None]
  - MOTOR DYSFUNCTION [None]
  - OEDEMA PERIPHERAL [None]
  - VISION BLURRED [None]
  - INSOMNIA [None]
  - PAIN [None]
  - EYE DISORDER [None]
  - SPEECH DISORDER [None]
  - DISTURBANCE IN ATTENTION [None]
